FAERS Safety Report 5568760-4 (Version None)
Quarter: 2007Q4

REPORT INFORMATION
  Report Type: 
  Country: None (occurrence: None)
  Receive Date: 20071220
  Receipt Date: 20061221
  Transmission Date: 20080405
  Serious: No
  Sender: FDA-Public Use
  Company Number: A0632376A

PATIENT
  Sex: Male

DRUGS (2)
  1. AVODART [Suspect]
     Dosage: .5MG SINGLE DOSE
     Route: 048
  2. CIPROFLOXACIN HCL [Suspect]
     Dosage: 500MG UNKNOWN
     Route: 048

REACTIONS (1)
  - DRUG INTERACTION [None]
